FAERS Safety Report 19839920 (Version 1)
Quarter: 2021Q3

REPORT INFORMATION
  Report Type: Spontaneous
  Country: US (occurrence: US)
  Receive Date: 20210916
  Receipt Date: 20210916
  Transmission Date: 20211014
  Serious: Yes (Hospitalization)
  Sender: FDA-Public Use
  Company Number: None

PATIENT
  Age: 57 Year
  Sex: Female
  Weight: 83.9 kg

DRUGS (1)
  1. DOXIL [Suspect]
     Active Substance: DOXORUBICIN HYDROCHLORIDE
     Indication: BREAST CANCER
     Dosage: ?          OTHER FREQUENCY:EVERY 28 DAYS;?
     Route: 042
     Dates: start: 20210910

REACTIONS (6)
  - Hypersensitivity [None]
  - Flushing [None]
  - Back pain [None]
  - Palpitations [None]
  - Abdominal pain [None]
  - Infusion related reaction [None]

NARRATIVE: CASE EVENT DATE: 20210910
